FAERS Safety Report 13068296 (Version 1)
Quarter: 2016Q4

REPORT INFORMATION
  Report Type: Spontaneous
  Country: JP (occurrence: JP)
  Receive Date: 20161228
  Receipt Date: 20161228
  Transmission Date: 20170207
  Serious: Yes (Other)
  Sender: FDA-Public Use
  Company Number: JP-ACS-000497

PATIENT
  Sex: Male
  Weight: 2.8 kg

DRUGS (2)
  1. AMPICILLIN [Suspect]
     Active Substance: AMPICILLIN
     Route: 064
  2. AMPICILLIN [Suspect]
     Active Substance: AMPICILLIN
     Indication: CONGENITAL SYPHILIS
     Route: 042

REACTIONS (2)
  - Jarisch-Herxheimer reaction [Recovered/Resolved]
  - Exposure during pregnancy [Recovered/Resolved]
